FAERS Safety Report 6027422-X (Version None)
Quarter: 2008Q4

REPORT INFORMATION
  Report Type: 
  Country: None (occurrence: None)
  Receive Date: 20081222
  Receipt Date: 20080919
  Transmission Date: 20090506
  Serious: No
  Sender: FDA-Public Use
  Company Number: US-WYE-H06068108

PATIENT
  Age: 65 Year
  Sex: Male
  Weight: 74.91 kg

DRUGS (1)
  1. PRISTIQ [Suspect]
     Indication: ANXIETY
     Dosage: 50 MG 1X PER 1 DAY, ORAL
     Route: 048
     Dates: start: 20080918

REACTIONS (3)
  - CONDITION AGGRAVATED [None]
  - FEELING JITTERY [None]
  - TREMOR [None]
